FAERS Safety Report 5542031-4 (Version None)
Quarter: 2007Q4

REPORT INFORMATION
  Report Type: 
  Country: None (occurrence: None)
  Receive Date: 20071210
  Receipt Date: 20071205
  Transmission Date: 20080405
  Serious: Yes (Life-Threatening)
  Sender: FDA-Public Use
  Company Number: CN-ASTRAZENECA-2007AP07739

PATIENT
  Age: 35 Year
  Sex: Male

DRUGS (1)
  1. ROPIVACAINE [Suspect]
     Indication: ANAESTHESIA
     Route: 053

REACTIONS (2)
  - LOSS OF CONSCIOUSNESS [None]
  - RESPIRATORY ARREST [None]
